FAERS Safety Report 12548233 (Version 2)
Quarter: 2016Q3

REPORT INFORMATION
  Report Type: Spontaneous
  Country: US (occurrence: US)
  Receive Date: 20160712
  Receipt Date: 20160913
  Transmission Date: 20161109
  Serious: No
  Sender: FDA-Public Use
  Company Number: US-PFIZER INC-2016332082

PATIENT
  Age: 86 Year
  Sex: Male
  Weight: 81 kg

DRUGS (9)
  1. TYLENOL EXTRA STRENGTH [Suspect]
     Active Substance: ACETAMINOPHEN
     Indication: PAIN
     Dosage: UNK, AS NEEDED (4 OR 5 PER DAY)
     Route: 048
     Dates: start: 201602
  2. TYLENOL EXTRA STRENGTH [Suspect]
     Active Substance: ACETAMINOPHEN
     Indication: POST HERPETIC NEURALGIA
     Dosage: 500 MG, 4X/DAY, CAPLETS
     Route: 048
     Dates: start: 201604
  3. ATORVASTATIN [Concomitant]
     Active Substance: ATORVASTATIN
     Indication: BLOOD CHOLESTEROL ABNORMAL
     Dosage: 10 MG, 1X/DAY
     Route: 048
     Dates: start: 20150909
  4. LYRICA [Suspect]
     Active Substance: PREGABALIN
     Indication: POST HERPETIC NEURALGIA
     Dosage: 100 MG, 3X/DAY
     Route: 048
     Dates: start: 20160414
  5. VITAMINS [Concomitant]
     Active Substance: VITAMINS
     Dosage: UNK
  6. LEVOTHYROXINE. [Concomitant]
     Active Substance: LEVOTHYROXINE
     Indication: THYROID DISORDER
     Dosage: 25 UG, 1X/DAY
     Route: 048
     Dates: start: 20150909
  7. FISH OIL [Concomitant]
     Active Substance: FISH OIL
     Dosage: UNK
  8. LYRICA [Suspect]
     Active Substance: PREGABALIN
     Dosage: 400 MG, DAILY, 100MG CAPSULE BY IN THE MORNING AND EVENING AND 200MG AT NIGHT
     Route: 048
     Dates: start: 20160609, end: 20160802
  9. METOPROLOL. [Concomitant]
     Active Substance: METOPROLOL
     Indication: BLOOD PRESSURE ABNORMAL
     Dosage: 50 MG, 1X/DAY (TOOK ONLY A FEW DAYS)
     Route: 048
     Dates: start: 20160223

REACTIONS (6)
  - Paraesthesia oral [Recovered/Resolved]
  - Weight increased [Recovered/Resolved]
  - Balance disorder [Recovered/Resolved]
  - Drug ineffective [Not Recovered/Not Resolved]
  - Dizziness [Recovered/Resolved]
  - Vertigo [Recovered/Resolved]

NARRATIVE: CASE EVENT DATE: 201604
